FAERS Safety Report 13627263 (Version 1)
Quarter: 2017Q2

REPORT INFORMATION
  Report Type: Spontaneous
  Country: US (occurrence: US)
  Receive Date: 20170607
  Receipt Date: 20170607
  Transmission Date: 20170830
  Serious: No
  Sender: FDA-Public Use
  Company Number: None

PATIENT
  Age: 36 Year
  Sex: Female
  Weight: 63 kg

DRUGS (2)
  1. BB BROAD SPECTRUM SPF 15 LIGHT [Suspect]
     Active Substance: TITANIUM DIOXIDE\ZINC OXIDE
     Indication: SKIN COSMETIC PROCEDURE
     Route: 061
     Dates: start: 20161201, end: 20170107
  2. PRENATAL VITAMIN [Concomitant]
     Active Substance: VITAMINS

REACTIONS (3)
  - Eyelid irritation [None]
  - Eyelid oedema [None]
  - Erythema of eyelid [None]

NARRATIVE: CASE EVENT DATE: 20170105
